FAERS Safety Report 7513226-5 (Version None)
Quarter: 2011Q2

REPORT INFORMATION
  Report Type: 
  Country: None (occurrence: None)
  Receive Date: 20110531
  Receipt Date: 20110511
  Transmission Date: 20111010
  Serious: Yes (Hospitalization)
  Sender: FDA-Public Use
  Company Number: US-BAYER-201037553NA

PATIENT
  Age: 35 Year
  Sex: Female
  Weight: 123 kg

DRUGS (27)
  1. IBUPROFEN [Concomitant]
     Dosage: 600 MG, UNK
     Route: 048
     Dates: start: 20040101
  2. MECLIZINE [Concomitant]
     Dosage: 25 MG, UNK
     Route: 048
     Dates: start: 20040601
  3. ZOFRAN [Concomitant]
     Dosage: UNK
     Route: 048
     Dates: start: 20040101
  4. LORAZEPAM [Concomitant]
     Dosage: 0.5 MG, UNK
     Route: 048
     Dates: start: 20030701
  5. PREVACID [Concomitant]
     Dosage: UNK UNK, BID
  6. ZYRTEC [Concomitant]
     Dosage: 10 MG, QD
     Route: 048
     Dates: start: 20000301
  7. ZOLOFT [Concomitant]
     Dosage: 200 MG, HS
     Route: 048
     Dates: start: 20040601
  8. CLONAZEPAM [Concomitant]
     Indication: ANXIETY
     Dosage: 0.5 MG, BID
     Route: 048
     Dates: start: 20040601
  9. CIPRO [Concomitant]
     Dosage: 750 MG, BID
     Route: 048
     Dates: start: 20040708
  10. MAALOX [Concomitant]
     Dosage: UNK
     Route: 048
     Dates: start: 20040101
  11. MYLANTA AR [Concomitant]
     Dosage: UNK
     Route: 048
     Dates: start: 20040101
  12. LEVOXYL [Concomitant]
     Dosage: 150 MG, QD
     Route: 048
     Dates: start: 20000201
  13. LAMICTAL [Concomitant]
     Dosage: 200 MG, HS
     Route: 048
     Dates: start: 20040201
  14. FAMOTIDINE [Concomitant]
     Dosage: 20 MG, UNK
     Route: 048
     Dates: start: 20040601
  15. ASPIRIN [Concomitant]
     Dosage: UNK UNK, QD
     Route: 048
     Dates: start: 20040101
  16. IMITREX [Concomitant]
     Dosage: 50 MG, PRN
     Route: 048
     Dates: start: 20040101
  17. DYAZIDE [Concomitant]
     Dosage: 37.5/25, QD
     Route: 048
     Dates: start: 20040401
  18. FLAGYL [Concomitant]
     Dosage: 500 MG, QID
     Route: 048
     Dates: start: 20040101
  19. DILAUDID [Concomitant]
     Dosage: UNK
     Route: 048
     Dates: start: 20040101
  20. YASMIN [Suspect]
     Indication: ACNE
     Dosage: UNK
     Dates: end: 20040725
  21. EFFEXOR XR [Concomitant]
     Dosage: 75 MG, UNK
     Route: 048
     Dates: start: 20030301
  22. PROVERA [Concomitant]
     Dosage: 10 MG, UNK
     Route: 048
     Dates: start: 20010501
  23. PERCOCET [Concomitant]
     Dosage: 5MG/300MG/4DAYS
     Route: 048
     Dates: start: 20040707
  24. WELLBUTRIN XL [Concomitant]
     Dosage: 150 MG, UNK
     Route: 048
     Dates: start: 20040301
  25. PAXIL CR [Concomitant]
     Dosage: 250 MG, UNK
     Route: 048
     Dates: start: 20040101
  26. CLINDAMYCIN [Concomitant]
     Dosage: 15 MG, UNK
     Route: 048
     Dates: start: 20040526
  27. PHENERGAN HCL [Concomitant]
     Dosage: UNK
     Route: 048
     Dates: start: 20040101

REACTIONS (7)
  - THROMBOSIS [None]
  - PORTAL VEIN THROMBOSIS [None]
  - ABDOMINAL PAIN [None]
  - ISCHAEMIA [None]
  - DEPRESSION [None]
  - PANCREATITIS ACUTE [None]
  - MESENTERIC VEIN THROMBOSIS [None]
